FAERS Safety Report 10494581 (Version 1)
Quarter: 2014Q3

REPORT INFORMATION
  Report Type: Spontaneous
  Country: US (occurrence: None)
  Receive Date: 20140815
  Receipt Date: 20140815
  Transmission Date: 20150326
  Serious: Yes (Other)
  Sender: FDA-Public Use
  Company Number: ADR-2013-01501

PATIENT
  Age: 37 Year
  Sex: Male

DRUGS (3)
  1. BACLOFEN. [Suspect]
     Active Substance: BACLOFEN
     Indication: PAIN
  2. BUPIVACAINE [Suspect]
     Active Substance: BUPIVACAINE
  3. HYDROMORPHONE (INTRATHECAL) 8.0 MG/ML [Suspect]
     Active Substance: HYDROMORPHONE

REACTIONS (3)
  - Pain [None]
  - Allodynia [None]
  - No therapeutic response [None]
